FAERS Safety Report 8032492-3 (Version None)
Quarter: 2011Q4

REPORT INFORMATION
  Report Type: 
  Country: None (occurrence: None)
  Receive Date: 20111223
  Receipt Date: 20111213
  Transmission Date: 20120403
  Serious: Yes (Hospitalization)
  Sender: FDA-Public Use
  Company Number: 2011SP053379

PATIENT
  Age: 57 Year
  Sex: Male
  Weight: 120.2032 kg

DRUGS (13)
  1. PROPRANOLOL [Concomitant]
  2. LANSOPRAZOLE [Concomitant]
  3. MULTIVITAMIN /00097801/ [Concomitant]
  4. PEGASYS [Suspect]
     Indication: PRODUCT USED FOR UNKNOWN INDICATION
     Dosage: UNK;SC
     Route: 058
  5. NOVOLOG [Concomitant]
  6. SPIRONOLACT [Concomitant]
  7. XIFAXAN [Concomitant]
  8. VICTRELIS [Suspect]
     Indication: PRODUCT USED FOR UNKNOWN INDICATION
     Dosage: 200 MG;TID;PO
     Route: 048
     Dates: start: 20111111, end: 20111206
  9. RIBAVIRIN [Suspect]
     Indication: PRODUCT USED FOR UNKNOWN INDICATION
     Dosage: 1200 MG;UNK;PO
     Route: 048
  10. FUROSEMIDE [Concomitant]
  11. FLUOXETINE [Concomitant]
  12. METFORMIN HCL [Concomitant]
  13. LEVEMIR [Concomitant]

REACTIONS (8)
  - NAUSEA [None]
  - NO THERAPEUTIC RESPONSE [None]
  - VIRAL LOAD INCREASED [None]
  - FATIGUE [None]
  - INFLUENZA LIKE ILLNESS [None]
  - DYSGEUSIA [None]
  - REBOUND EFFECT [None]
  - CHEST PAIN [None]
